FAERS Safety Report 6891364-8 (Version None)
Quarter: 2010Q3

REPORT INFORMATION
  Report Type: 
  Country: None (occurrence: None)
  Receive Date: 20100731
  Receipt Date: 20040429
  Transmission Date: 20110219
  Serious: Yes (Other)
  Sender: FDA-Public Use
  Company Number: US-PFIZER INC-2007058668

PATIENT
  Sex: Female

DRUGS (2)
  1. FLAGYL [Suspect]
     Dates: start: 19970101, end: 19970101
  2. CLARITHROMYCIN [Suspect]

REACTIONS (1)
  - NEUROPATHY PERIPHERAL [None]
